FAERS Safety Report 7325857-6 (Version None)
Quarter: 2011Q1

REPORT INFORMATION
  Report Type: 
  Country: None (occurrence: None)
  Receive Date: 20110302
  Receipt Date: 20110221
  Transmission Date: 20110831
  Serious: Yes (Hospitalization)
  Sender: FDA-Public Use
  Company Number: CA-JNJFOC-20101208554

PATIENT
  Sex: Male
  Weight: 57.9 kg

DRUGS (4)
  1. OXAZEPAM [Concomitant]
     Route: 065
  2. REMICADE [Suspect]
     Route: 042
  3. EMTEC 30 [Concomitant]
     Route: 065
  4. REMICADE [Suspect]
     Indication: CROHN'S DISEASE
     Route: 042

REACTIONS (1)
  - COLON OPERATION [None]
